FAERS Safety Report 7799507 (Version 2)
Quarter: 2014Q4

REPORT INFORMATION
  Report Type: Spontaneous
  Country: US (occurrence: US)
  Receive Date: 20110204
  Receipt Date: 20141218
  Transmission Date: 20150529
  Serious: Yes (Hospitalization, Other)
  Sender: FDA-Public Use
  Company Number: US-ROCHE-701301

PATIENT
  Age: 24 Year
  Sex: Female
  Weight: 56.7 kg

DRUGS (3)
  1. ACCUTANE [Suspect]
     Active Substance: ISOTRETINOIN
     Dosage: DOSE: 40 MG DAILY - ALTERNATING 80 MG
     Route: 065
     Dates: start: 19880520, end: 19880825
  2. ACCUTANE [Suspect]
     Active Substance: ISOTRETINOIN
     Route: 065
     Dates: start: 19860808, end: 19861210
  3. ACCUTANE [Suspect]
     Active Substance: ISOTRETINOIN
     Indication: ACNE
     Route: 065
     Dates: start: 19851004, end: 19851216

REACTIONS (9)
  - Suicidal ideation [Unknown]
  - Intestinal obstruction [Unknown]
  - Fistula [Unknown]
  - Hair growth abnormal [Unknown]
  - Lip dry [Unknown]
  - Dry skin [Unknown]
  - Colitis ulcerative [Unknown]
  - Inflammatory bowel disease [Unknown]
  - Depression [Unknown]

NARRATIVE: CASE EVENT DATE: 19851230
